FAERS Safety Report 24763965 (Version 1)
Quarter: 2024Q4

REPORT INFORMATION
  Report Type: Spontaneous
  Country: US (occurrence: US)
  Receive Date: 20241223
  Receipt Date: 20241223
  Transmission Date: 20250114
  Serious: No
  Sender: ELI LILLY AND COMPANY
  Company Number: US-ELI_LILLY_AND_COMPANY-US202412014119

PATIENT
  Age: 53 Year
  Sex: Female

DRUGS (2)
  1. VERZENIO [Suspect]
     Active Substance: ABEMACICLIB
     Indication: Metastases to breast
     Dosage: 150 MG, BID
     Route: 065
     Dates: start: 202406
  2. LETROZOLE [Suspect]
     Active Substance: LETROZOLE
     Indication: Product used for unknown indication
     Dosage: UNK, UNKNOWN
     Route: 065

REACTIONS (2)
  - Paraesthesia [Unknown]
  - Constipation [Unknown]

NARRATIVE: CASE EVENT DATE: 20240601
